FAERS Safety Report 17424074 (Version 3)
Quarter: 2020Q2

REPORT INFORMATION
  Report Type: Spontaneous
  Country: US (occurrence: US)
  Receive Date: 20200217
  Receipt Date: 20200602
  Transmission Date: 20200713
  Serious: Yes (Other)
  Sender: FDA-Public Use
  Company Number: US-GILEAD-2020-0450656

PATIENT
  Age: 54 Year
  Sex: Male

DRUGS (40)
  1. IRBESARTAN. [Concomitant]
     Active Substance: IRBESARTAN
  2. ZOLPIDEM TARTRATE. [Concomitant]
     Active Substance: ZOLPIDEM TARTRATE
  3. AMOXICILLIN. [Concomitant]
     Active Substance: AMOXICILLIN
  4. OMEPRAZOLE. [Concomitant]
     Active Substance: OMEPRAZOLE
  5. CLARITHROMYCIN. [Concomitant]
     Active Substance: CLARITHROMYCIN
  6. FLAGYL [Concomitant]
     Active Substance: METRONIDAZOLE\METRONIDAZOLE HYDROCHLORIDE
  7. BLACK CURRANT OIL [RIBES NIGRUM OIL] [Concomitant]
  8. MILK THISTLE [SILYBUM MARIANUM] [Concomitant]
     Active Substance: DIETARY SUPPLEMENT\HERBALS\MILK THISTLE
  9. LISINOPRIL. [Concomitant]
     Active Substance: LISINOPRIL
  10. CLINDAMYCIN. [Concomitant]
     Active Substance: CLINDAMYCIN
  11. METOPROLOL. [Concomitant]
     Active Substance: METOPROLOL
  12. RED YEAST RICE [Concomitant]
     Active Substance: DIETARY SUPPLEMENT
  13. ATORVASTATIN CALCIUM. [Concomitant]
     Active Substance: ATORVASTATIN CALCIUM
  14. PANTOPRAZOLE [Concomitant]
     Active Substance: PANTOPRAZOLE
  15. OMEGA-3 FATTY ACIDS [Concomitant]
     Active Substance: OMEGA-3 FATTY ACIDS
  16. MOMETASONE FUROATE. [Concomitant]
     Active Substance: MOMETASONE FUROATE
  17. HYDROCODONE BITARTRATE AND ACETAMINOPHEN [Concomitant]
     Active Substance: ACETAMINOPHEN\HYDROCODONE BITARTRATE
  18. VITAMIN D [COLECALCIFEROL] [Concomitant]
     Active Substance: CHOLECALCIFEROL
  19. TEMAZEPAM. [Concomitant]
     Active Substance: TEMAZEPAM
  20. GENTAK [Concomitant]
     Active Substance: GENTAMICIN SULFATE
  21. FENOFIBRATE. [Concomitant]
     Active Substance: FENOFIBRATE
  22. CIPRO [Concomitant]
     Active Substance: CIPROFLOXACIN HYDROCHLORIDE
  23. DOXYCYCLINE. [Concomitant]
     Active Substance: DOXYCYCLINE
  24. TRAMADOL. [Concomitant]
     Active Substance: TRAMADOL
  25. PATADAY [Concomitant]
     Active Substance: OLOPATADINE HYDROCHLORIDE
  26. TRUVADA [Suspect]
     Active Substance: EMTRICITABINE\TENOFOVIR DISOPROXIL FUMARATE
     Indication: HIV INFECTION
     Dosage: 200-300 MG
     Route: 048
     Dates: start: 20130130, end: 20130824
  27. GENVOYA [Concomitant]
     Active Substance: COBICISTAT\ELVITEGRAVIR\EMTRICITABINE\TENOFOVIR ALAFENAMIDE FUMARATE
     Indication: HIV INFECTION
     Dosage: 1 DOSAGE FORM (150-150-200-10 MG), QD
     Dates: start: 201901
  28. COENZYME Q10 [Concomitant]
     Active Substance: UBIDECARENONE
  29. KETOCONAZOLE. [Concomitant]
     Active Substance: KETOCONAZOLE
  30. METHYLPREDNISOLONE. [Concomitant]
     Active Substance: METHYLPREDNISOLONE
  31. LIDOCAINE. [Concomitant]
     Active Substance: LIDOCAINE
  32. TRETINOIN. [Concomitant]
     Active Substance: TRETINOIN
  33. STRIBILD [Suspect]
     Active Substance: COBICISTAT\ELVITEGRAVIR\EMTRICITABINE\TENOFOVIR DISOPROXIL FUMARATE
     Indication: HIV INFECTION
     Dosage: 1 DOSAGE FORM (150-150-200-300 MG), QD
     Route: 048
     Dates: start: 20131023, end: 20181022
  34. ACYCLOVIR [ACICLOVIR] [Concomitant]
     Active Substance: ACYCLOVIR
  35. ASPIRIN EC [Concomitant]
     Active Substance: ASPIRIN
  36. AMOXICILLIN + CLAV. POTASSIUM [Concomitant]
     Active Substance: AMOXICILLIN\CLAVULANATE POTASSIUM
  37. DESONIDE. [Concomitant]
     Active Substance: DESONIDE
  38. KALETRA [Concomitant]
     Active Substance: LOPINAVIR\RITONAVIR
  39. MYCOBUTIN [Concomitant]
     Active Substance: RIFABUTIN
  40. TINIDAZOLE. [Concomitant]
     Active Substance: TINIDAZOLE

REACTIONS (13)
  - Renal failure [Unknown]
  - Atrophy [Not Recovered/Not Resolved]
  - Anxiety [Unknown]
  - Economic problem [Unknown]
  - Asthenia [Not Recovered/Not Resolved]
  - Rib fracture [Not Recovered/Not Resolved]
  - Dysmorphism [Not Recovered/Not Resolved]
  - Fracture [Unknown]
  - Bone density decreased [Unknown]
  - Emotional distress [Unknown]
  - Anhedonia [Unknown]
  - Pain [Not Recovered/Not Resolved]
  - Chronic kidney disease [Not Recovered/Not Resolved]

NARRATIVE: CASE EVENT DATE: 20180710
